FAERS Safety Report 9011271 (Version 1)
Quarter: 2013Q1

REPORT INFORMATION
  Report Type: Spontaneous
  Country: US (occurrence: US)
  Receive Date: 20130109
  Receipt Date: 20130109
  Transmission Date: 20140127
  Serious: Yes (Life-Threatening, Hospitalization)
  Sender: FDA-Public Use
  Company Number: US-009507513-1004USA01541

PATIENT
  Age: 52 Year
  Sex: Male
  Weight: 88.45 kg

DRUGS (1)
  1. SINGULAIR [Suspect]
     Indication: HYPERSENSITIVITY
     Dosage: 10 MG, QD
     Dates: start: 20050101, end: 20070101

REACTIONS (1)
  - Pneumonia [Unknown]
